FAERS Safety Report 7800492-1 (Version None)
Quarter: 2011Q4

REPORT INFORMATION
  Report Type: 
  Country: None (occurrence: None)
  Receive Date: 20111006
  Receipt Date: 20110926
  Transmission Date: 20120403
  Serious: Yes (Hospitalization, Other)
  Sender: FDA-Public Use
  Company Number: US-BAYER-201034738NA

PATIENT
  Age: 21 Year
  Sex: Female
  Weight: 77.098 kg

DRUGS (16)
  1. NAPROXEN [Concomitant]
     Dosage: UNK
     Dates: start: 20080101
  2. DROSPIRENONE AND ETHINYL ESTRADIOL [Suspect]
     Indication: ACNE
     Dosage: UNK
     Dates: start: 20080812, end: 20091226
  3. DROSPIRENONE AND ETHINYL ESTRADIOL [Suspect]
     Indication: DYSMENORRHOEA
  4. YASMIN [Suspect]
     Indication: ACNE
     Dosage: UNK
     Route: 048
     Dates: start: 20031202, end: 20080606
  5. NAPROSYN [Concomitant]
  6. YASMIN [Suspect]
     Indication: DYSMENORRHOEA
     Dosage: UNK
     Dates: start: 20090720, end: 20090801
  7. SYNTHROID [Concomitant]
  8. CLARINEX [Concomitant]
  9. YASMIN [Suspect]
  10. OMEPRAZOLE [Concomitant]
  11. LEVOTHYROZINE SODIUM [Concomitant]
     Indication: HYPOTHYROIDISM
     Dosage: UNK
     Dates: start: 20080101, end: 20090101
  12. PHENERGAN HCL [Concomitant]
  13. PERCOCET [Concomitant]
  14. PHANERGAN SUPPOSITORIES [Concomitant]
  15. DROSPIRENONE AND ETHINYL ESTRADIOL [Suspect]
  16. PRILOSEC [Concomitant]

REACTIONS (2)
  - GALLBLADDER DISORDER [None]
  - CHOLECYSTITIS [None]
